FAERS Safety Report 12540367 (Version 1)
Quarter: 2016Q3

REPORT INFORMATION
  Report Type: Spontaneous
  Country: US (occurrence: US)
  Receive Date: 20160708
  Receipt Date: 20160708
  Transmission Date: 20161109
  Serious: No
  Sender: FDA-Public Use
  Company Number: US-PFIZER INC-2016312761

PATIENT

DRUGS (2)
  1. WATER FOR INJECTION [Suspect]
     Active Substance: WATER
     Dosage: UNK
  2. WATER FOR INJECTION [Suspect]
     Active Substance: WATER
     Dosage: UNK

REACTIONS (3)
  - Erythema [Unknown]
  - Induration [Unknown]
  - Swelling face [Unknown]
